FAERS Safety Report 24846303 (Version 1)
Quarter: 2025Q1

REPORT INFORMATION
  Report Type: Spontaneous
  Country: MY (occurrence: MY)
  Receive Date: 20250115
  Receipt Date: 20250115
  Transmission Date: 20250409
  Serious: Yes (Other)
  Sender: SANDOZ
  Company Number: MY-SANDOZ-SDZ2025MY002233

PATIENT
  Age: 67 Year
  Sex: Male

DRUGS (1)
  1. CEFAZOLIN [Suspect]
     Active Substance: CEFAZOLIN
     Indication: Device related infection
     Dosage: 1 G, QD (VIAL)
     Route: 042

REACTIONS (2)
  - Dermatitis exfoliative [Recovering/Resolving]
  - Rash macular [Recovering/Resolving]
